FAERS Safety Report 10234013 (Version 1)
Quarter: 2014Q2

REPORT INFORMATION
  Report Type: Spontaneous
  Country: CN (occurrence: CN)
  Receive Date: 20140612
  Receipt Date: 20140612
  Transmission Date: 20141212
  Serious: Yes (Hospitalization, Other)
  Sender: FDA-Public Use
  Company Number: CN-ELI_LILLY_AND_COMPANY-CN201406003970

PATIENT
  Age: 37 Year
  Sex: Male

DRUGS (2)
  1. ZYPREXA [Suspect]
     Indication: DELUSIONAL DISORDER, UNSPECIFIED TYPE
     Dosage: 2.5 MG, QD
     Route: 048
     Dates: start: 20130129, end: 20130217
  2. REMERON                                 /AUS/ [Concomitant]
     Indication: DEPRESSION
     Dosage: 45 MG, QD
     Route: 048
     Dates: start: 20130129, end: 20130218

REACTIONS (3)
  - Enteritis [Recovering/Resolving]
  - Alanine aminotransferase increased [Recovering/Resolving]
  - Aspartate aminotransferase increased [Recovering/Resolving]
